FAERS Safety Report 16089311 (Version 1)
Quarter: 2019Q1

REPORT INFORMATION
  Report Type: Spontaneous
  Country: US (occurrence: US)
  Receive Date: 20190319
  Receipt Date: 20190319
  Transmission Date: 20190418
  Serious: No
  Sender: FDA-Public Use
  Company Number: US-PFIZER INC-2019111181

PATIENT
  Sex: Female

DRUGS (3)
  1. NEURONTIN [Suspect]
     Active Substance: GABAPENTIN
     Indication: BACK PAIN
     Dosage: 300 MG, DAILY (1ST 3 DAYS)
  2. NEURONTIN [Suspect]
     Active Substance: GABAPENTIN
     Indication: PAIN IN EXTREMITY
     Dosage: 600 MG, DAILY (NEXT 3DAYS)
  3. NEURONTIN [Suspect]
     Active Substance: GABAPENTIN
     Dosage: 900 MG, DAILY THEN

REACTIONS (3)
  - Somnolence [Unknown]
  - Dizziness [Unknown]
  - Off label use [Unknown]
